FAERS Safety Report 8357263-X (Version None)
Quarter: 2012Q2

REPORT INFORMATION
  Report Type: 
  Country: None (occurrence: None)
  Receive Date: 20120514
  Receipt Date: 20120508
  Transmission Date: 20120825
  Serious: Yes (Hospitalization)
  Sender: FDA-Public Use
  Company Number: PHFR2011GB05226

PATIENT
  Sex: Male

DRUGS (5)
  1. AMITRIPTYLINE HCL [Concomitant]
     Dosage: 100 MG/DAY
     Route: 048
  2. PROPRANOLOL [Concomitant]
     Dosage: 40 MG, UNK
  3. CLOZARIL [Suspect]
     Dosage: 400 MG/DAY
     Route: 048
     Dates: start: 20101213
  4. VALPROIC ACID [Concomitant]
     Dosage: 800 MG/DAY
     Route: 048
  5. ESOMEPRAZOLE MAGNESIUM [Concomitant]
     Dosage: 300 MG/DAY
     Route: 048

REACTIONS (4)
  - INFECTION [None]
  - NEUTROPHIL COUNT INCREASED [None]
  - WHITE BLOOD CELL COUNT INCREASED [None]
  - DIFFERENTIAL WHITE BLOOD CELL COUNT ABNORMAL [None]
